FAERS Safety Report 9277476 (Version 1)
Quarter: 2013Q2

REPORT INFORMATION
  Report Type: Spontaneous
  Country: AU (occurrence: AU)
  Receive Date: 20130508
  Receipt Date: 20130508
  Transmission Date: 20140414
  Serious: Yes (Hospitalization)
  Sender: FDA-Public Use
  Company Number: AU-JNJFOC-20120910571

PATIENT
  Sex: Male

DRUGS (2)
  1. REMICADE [Suspect]
     Indication: CROHN^S DISEASE
     Route: 042
  2. ALL OTHER THERAPEUTICS [Concomitant]
     Indication: PREMEDICATION
     Route: 065

REACTIONS (6)
  - Infusion related reaction [Recovering/Resolving]
  - Chest pain [Recovering/Resolving]
  - Rash [Recovered/Resolved]
  - Chest discomfort [Recovered/Resolved]
  - Urticaria [Recovered/Resolved]
  - Blood pressure increased [Recovering/Resolving]
